FAERS Safety Report 16716498 (Version 1)
Quarter: 2019Q3

REPORT INFORMATION
  Report Type: Report from Study
  Country: DK (occurrence: DK)
  Receive Date: 20190819
  Receipt Date: 20190819
  Transmission Date: 20191005
  Serious: Yes (Other)
  Sender: FDA-Public Use
  Company Number: DK-UCBSA-2019034587

PATIENT
  Sex: Female

DRUGS (1)
  1. LEVETIRACETAM. [Suspect]
     Active Substance: LEVETIRACETAM
     Indication: EPILEPSY
     Dosage: 400MG DAILY

REACTIONS (4)
  - Abortion spontaneous [Unknown]
  - Underdose [Unknown]
  - Maternal exposure during pregnancy [Unknown]
  - Off label use [Unknown]
